FAERS Safety Report 13863272 (Version 2)
Quarter: 2019Q1

REPORT INFORMATION
  Report Type: Spontaneous
  Country: GB (occurrence: GB)
  Receive Date: 20170814
  Receipt Date: 20190201
  Transmission Date: 20190417
  Serious: Yes (Hospitalization, Other)
  Sender: FDA-Public Use
  Company Number: GB-ACCORD-056950

PATIENT
  Age: 47 Year
  Sex: Female
  Weight: 72 kg

DRUGS (16)
  1. DULOXETINE/DULOXETINE HYDROCHLORIDE [Concomitant]
     Indication: NEUROPATHY PERIPHERAL
     Dosage: IN DIVIDED DOSES
  2. ZOPICLONE [Concomitant]
     Active Substance: ZOPICLONE
  3. RANITIDINE. [Concomitant]
     Active Substance: RANITIDINE
  4. MAXALT [Concomitant]
     Active Substance: RIZATRIPTAN BENZOATE
     Dosage: RARELY
  5. IBUPROFEN. [Concomitant]
     Active Substance: IBUPROFEN
     Dosage: RARELY
  6. CYCLIZINE [Concomitant]
     Active Substance: CYCLIZINE
     Dosage: RARELY
  7. TOPIRAMATE. [Suspect]
     Active Substance: TOPIRAMATE
     Indication: MIGRAINE WITH AURA
     Dosage: REDUCING DOSE BY 25 MG UNTIL ZERO.
     Route: 048
     Dates: start: 20150710, end: 20170429
  8. DIHYDROCODEINE [Concomitant]
     Active Substance: DIHYDROCODEINE
     Indication: PAIN
  9. BACLOFEN. [Concomitant]
     Active Substance: BACLOFEN
     Dosage: IN DIVIDED DOSES
  10. PREGABALIN. [Concomitant]
     Active Substance: PREGABALIN
     Indication: NEUROPATHY PERIPHERAL
  11. SUMATRIPTAN. [Concomitant]
     Active Substance: SUMATRIPTAN
     Dosage: RARELY
     Route: 058
  12. MODAFINIL. [Concomitant]
     Active Substance: MODAFINIL
     Indication: FATIGUE
  13. OMEPRAZOLE. [Concomitant]
     Active Substance: OMEPRAZOLE
  14. SYMBICORT [Concomitant]
     Active Substance: BUDESONIDE\FORMOTEROL FUMARATE DIHYDRATE
     Indication: ASTHMA
  15. CLONAZEPAM. [Concomitant]
     Active Substance: CLONAZEPAM
     Indication: MUSCLE SPASMS
     Dosage: FOR LEG SPASMS
  16. VENTOLIN [Concomitant]
     Active Substance: ALBUTEROL SULFATE
     Indication: ASTHMA

REACTIONS (8)
  - Contusion [Unknown]
  - Neutropenia [Recovered/Resolved]
  - Aphonia [Unknown]
  - Fatigue [Unknown]
  - Somnolence [Unknown]
  - Oropharyngeal pain [Unknown]
  - Infection [Unknown]
  - Lymphopenia [Recovered/Resolved]

NARRATIVE: CASE EVENT DATE: 20160113
